FAERS Safety Report 15318842 (Version 1)
Quarter: 2018Q3

REPORT INFORMATION
  Report Type: Spontaneous
  Country: US (occurrence: US)
  Receive Date: 20180819
  Receipt Date: 20180819
  Transmission Date: 20181010
  Serious: Yes (Disabling)
  Sender: FDA-Public Use
  Company Number: None

PATIENT
  Age: 60 Year
  Sex: Female
  Weight: 56.25 kg

DRUGS (5)
  1. LEVOFLOXIN [Suspect]
     Active Substance: LEVOFLOXACIN
     Indication: URINARY TRACT INFECTION
     Dates: start: 20180523, end: 20180524
  2. MULTIVITAMIN [Concomitant]
     Active Substance: VITAMINS
  3. MAGNESIUM [Concomitant]
     Active Substance: MAGNESIUM
  4. VITAMIN D [Concomitant]
     Active Substance: CHOLECALCIFEROL
  5. CALCIUM [Concomitant]
     Active Substance: CALCIUM

REACTIONS (25)
  - Fatigue [None]
  - Confusional state [None]
  - Feeling abnormal [None]
  - Arthralgia [None]
  - Amnesia [None]
  - Tinnitus [None]
  - Visual impairment [None]
  - Depersonalisation/derealisation disorder [None]
  - Derealisation [None]
  - Pain [None]
  - Tendon pain [None]
  - Abdominal discomfort [None]
  - Insomnia [None]
  - Alopecia [None]
  - Asthenia [None]
  - Depression [None]
  - Obsessive-compulsive disorder [None]
  - Neuropathy peripheral [None]
  - Toxicity to various agents [None]
  - Palpitations [None]
  - Loss of employment [None]
  - Myalgia [None]
  - Nightmare [None]
  - Tremor [None]
  - Headache [None]

NARRATIVE: CASE EVENT DATE: 20180523
